FAERS Safety Report 24604067 (Version 1)
Quarter: 2024Q4

REPORT INFORMATION
  Report Type: Spontaneous
  Country: CH (occurrence: CH)
  Receive Date: 20241111
  Receipt Date: 20241111
  Transmission Date: 20250114
  Serious: Yes (Hospitalization, Other)
  Sender: MERCK
  Company Number: None

PATIENT
  Age: 58 Year
  Sex: Male

DRUGS (12)
  1. INVANZ [Suspect]
     Active Substance: ERTAPENEM SODIUM
     Indication: Abdominal abscess
     Route: 040
     Dates: start: 20240723, end: 20240725
  2. METAMIZOLE [Suspect]
     Active Substance: METAMIZOLE
     Indication: Analgesic therapy
     Dosage: 500 MG ? 1G P. O. IN ALTERNATING DOSES 1-4 TIMES DAILY SINCE MID-JUNE 2022
     Route: 048
     Dates: start: 202206, end: 20240719
  3. METAMIZOLE [Suspect]
     Active Substance: METAMIZOLE
     Dosage: 500 MG ? 1G P. O. IN ALTERNATING DOSES 1-4 TIMES DAILY
     Route: 048
     Dates: start: 20240719, end: 20240721
  4. METAMIZOLE [Suspect]
     Active Substance: METAMIZOLE
     Dosage: 1 GRAM
     Route: 048
     Dates: start: 20240722, end: 20240722
  5. METAMIZOLE [Suspect]
     Active Substance: METAMIZOLE
     Dosage: 500 MG ? 1G P. O. IN ALTERNATING DOSES 1-4 TIMES DAILY
     Route: 048
     Dates: start: 20240723, end: 20240725
  6. MAGNESIUM ASPARTATE HYDROCHLORIDE [Concomitant]
     Active Substance: MAGNESIUM ASPARTATE HYDROCHLORIDE
     Dosage: 5 MILLIMOLE
     Route: 048
  7. PANTOZOL [Concomitant]
     Active Substance: PANTOPRAZOLE SODIUM
     Indication: Prophylaxis against gastrointestinal ulcer
     Route: 048
  8. METOCLOPRAMIDE HYDROCHLORIDE [Concomitant]
     Active Substance: METOCLOPRAMIDE HYDROCHLORIDE
     Indication: Prophylaxis of nausea and vomiting
     Dosage: 4 MG/ML
     Route: 048
  9. FRAGMIN [Concomitant]
     Active Substance: DALTEPARIN SODIUM
     Indication: Thrombosis prophylaxis
     Route: 058
  10. DAFALGAN [Concomitant]
     Active Substance: ACETAMINOPHEN
     Dosage: 500 MG MAX 2 TABLETS EVERY 8 HOURS AS NEEDED.
     Route: 048
  11. DAFALGAN [Concomitant]
     Active Substance: ACETAMINOPHEN
     Dosage: FIX 1-1-1
     Route: 048
     Dates: start: 20240725, end: 20240729
  12. POLYETHYLENE GLYCOL 3350\POTASSIUM CHLORIDE\SODIUM BICARBONATE\SODIUM [Concomitant]
     Active Substance: POLYETHYLENE GLYCOL 3350\POTASSIUM CHLORIDE\SODIUM BICARBONATE\SODIUM CHLORIDE
     Route: 048

REACTIONS (1)
  - Agranulocytosis [Recovered/Resolved]

NARRATIVE: CASE EVENT DATE: 20240725
